FAERS Safety Report 13286700 (Version 2)
Quarter: 2018Q2

REPORT INFORMATION
  Report Type: Spontaneous
  Country: FR (occurrence: FR)
  Receive Date: 20170302
  Receipt Date: 20180405
  Transmission Date: 20180711
  Serious: Yes (Other)
  Sender: FDA-Public Use
  Company Number: FR-TEVA-744227ISR

PATIENT
  Age: 14 Year
  Sex: Female
  Weight: 42.5 kg

DRUGS (5)
  1. VINCRISTINE [Suspect]
     Active Substance: VINCRISTINE
     Indication: ACUTE LYMPHOCYTIC LEUKAEMIA
     Route: 065
  2. VORICONAZOLE. [Interacting]
     Active Substance: VORICONAZOLE
     Indication: BRONCHOPULMONARY ASPERGILLOSIS
     Dosage: 15 MG/KG DAILY;
     Route: 041
  3. VORICONAZOLE. [Interacting]
     Active Substance: VORICONAZOLE
     Dosage: 17 MG/KG DAILY;
     Route: 048
  4. VORICONAZOLE. [Interacting]
     Active Substance: VORICONAZOLE
     Dosage: 15 MG/KG DAILY;
     Route: 048
  5. VORICONAZOLE. [Interacting]
     Active Substance: VORICONAZOLE
     Route: 041

REACTIONS (3)
  - Neuralgia [Recovering/Resolving]
  - Encephalopathy [Recovered/Resolved]
  - Drug interaction [Recovering/Resolving]
